FAERS Safety Report 6068646-5 (Version None)
Quarter: 2009Q1

REPORT INFORMATION
  Report Type: 
  Country: None (occurrence: None)
  Receive Date: 20090206
  Receipt Date: 20090203
  Transmission Date: 20090719
  Serious: Yes (Hospitalization)
  Sender: FDA-Public Use
  Company Number: A0699077A

PATIENT
  Age: 41 Year
  Sex: Male
  Weight: 109.1 kg

DRUGS (9)
  1. AVANDIA [Suspect]
     Dosage: 4MG PER DAY
     Route: 048
     Dates: start: 20010405, end: 20070701
  2. LIPITOR [Concomitant]
  3. LISINOPRIL [Concomitant]
  4. ZETIA [Concomitant]
  5. METFORMIN HCL [Concomitant]
  6. PLAVIX [Concomitant]
  7. METFORMIN HCL [Concomitant]
  8. NITROGLYCERIN [Concomitant]
  9. HEPARIN [Concomitant]

REACTIONS (10)
  - ANXIETY [None]
  - ARTERIOSCLEROSIS CORONARY ARTERY [None]
  - BLOOD CHOLESTEROL INCREASED [None]
  - CORONARY ARTERY DISEASE [None]
  - HEART INJURY [None]
  - HYPERLIPIDAEMIA [None]
  - INJURY [None]
  - ISCHAEMIC CARDIOMYOPATHY [None]
  - MYOCARDIAL INFARCTION [None]
  - PAIN [None]
